FAERS Safety Report 19002639 (Version 1)
Quarter: 2021Q1

REPORT INFORMATION
  Report Type: Spontaneous
  Country: US (occurrence: US)
  Receive Date: 20210312
  Receipt Date: 20210312
  Transmission Date: 20210420
  Serious: No
  Sender: FDA-Public Use
  Company Number: US-ALLERGAN-2039271US

PATIENT
  Sex: Female

DRUGS (3)
  1. UNSPECIFIED ANTIDEPRESSANTS [Concomitant]
     Active Substance: UNSPECIFIED INGREDIENT
  2. DILAUDID [Concomitant]
     Active Substance: HYDROMORPHONE HYDROCHLORIDE
  3. ESTRADIOL VAGINAL CREAM USP 0.01% [Suspect]
     Active Substance: ESTRADIOL
     Indication: PRODUCT USED FOR UNKNOWN INDICATION
     Dosage: UNK UNK, QD
     Route: 067
     Dates: start: 20200924, end: 20201008

REACTIONS (1)
  - Diarrhoea [Not Recovered/Not Resolved]

NARRATIVE: CASE EVENT DATE: 20200929
